FAERS Safety Report 22352907 (Version 2)
Quarter: 2023Q2

REPORT INFORMATION
  Report Type: Spontaneous
  Country: IT (occurrence: IT)
  Receive Date: 20230523
  Receipt Date: 20230626
  Transmission Date: 20230721
  Serious: Yes (Other)
  Sender: FDA-Public Use
  Company Number: IT-002147023-NVSC2023IT111593

PATIENT
  Age: 86 Year
  Sex: Female

DRUGS (2)
  1. BEOVU [Suspect]
     Active Substance: BROLUCIZUMAB-DBLL
     Indication: Eye disorder
     Dosage: UNK (RIGHT EYE)
     Route: 065
     Dates: start: 20230220
  2. BEOVU [Suspect]
     Active Substance: BROLUCIZUMAB-DBLL
     Dosage: UNK (RIGHT EYE)
     Route: 065
     Dates: start: 20230509

REACTIONS (2)
  - Vitritis [Unknown]
  - Corneal endotheliitis [Unknown]
